FAERS Safety Report 15335099 (Version 1)
Quarter: 2018Q3

REPORT INFORMATION
  Report Type: Spontaneous
  Country: LT (occurrence: LT)
  Receive Date: 20180830
  Receipt Date: 20180830
  Transmission Date: 20181010
  Serious: Yes (Hospitalization)
  Sender: FDA-Public Use
  Company Number: LT-JNJFOC-20180837648

PATIENT
  Age: 76 Year
  Sex: Male

DRUGS (8)
  1. XARELTO [Suspect]
     Active Substance: RIVAROXABAN
     Indication: ATRIAL FIBRILLATION
     Route: 048
     Dates: start: 20180724, end: 20180818
  2. TAMSULOSIN [Concomitant]
     Active Substance: TAMSULOSIN
     Indication: PROSTATITIS
     Route: 065
  3. DICLOFENAC [Concomitant]
     Active Substance: DICLOFENAC
     Indication: PROSTATITIS
     Route: 054
     Dates: start: 20180813, end: 20180818
  4. ATORVASTATIN [Concomitant]
     Active Substance: ATORVASTATIN
     Route: 065
     Dates: start: 20180724, end: 20180818
  5. CLOPIDOGREL [Concomitant]
     Active Substance: CLOPIDOGREL BISULFATE
     Route: 065
     Dates: start: 20180724, end: 20180818
  6. METOPROLOL. [Concomitant]
     Active Substance: METOPROLOL
     Route: 065
     Dates: start: 20180724, end: 20180818
  7. ZOFENOPRIL [Concomitant]
     Active Substance: ZOFENOPRIL
     Route: 065
     Dates: start: 20180724, end: 20180818
  8. NITROFURANTOIN. [Concomitant]
     Active Substance: NITROFURANTOIN
     Indication: PROSTATITIS
     Route: 065
     Dates: start: 20180813, end: 20180818

REACTIONS (6)
  - Faeces discoloured [Unknown]
  - Gastritis erosive [Unknown]
  - Duodenal ulcer haemorrhage [Unknown]
  - Haemorrhagic anaemia [Unknown]
  - Asthenia [Unknown]
  - Faeces discoloured [Unknown]

NARRATIVE: CASE EVENT DATE: 201807
